FAERS Safety Report 17818755 (Version 1)
Quarter: 2020Q2

REPORT INFORMATION
  Report Type: Spontaneous
  Country: CA (occurrence: CA)
  Receive Date: 20200522
  Receipt Date: 20200522
  Transmission Date: 20200714
  Serious: Yes (Hospitalization, Other)
  Sender: FDA-Public Use
  Company Number: CA-TEVA-2020-CA-1238968

PATIENT
  Age: 48 Year
  Sex: Male

DRUGS (11)
  1. INFLECTRA [Concomitant]
     Active Substance: INFLIXIMAB-DYYB
     Dates: start: 20190806
  2. CIPROFLOXACIN. [Suspect]
     Active Substance: CIPROFLOXACIN
     Dates: start: 2020, end: 202002
  3. INFLECTRA [Concomitant]
     Active Substance: INFLIXIMAB-DYYB
     Dates: start: 20191029
  4. INFLECTRA [Concomitant]
     Active Substance: INFLIXIMAB-DYYB
     Dosage: EVERY 0,2, 6 WEEKS THEN EVERY 8 WEEKS
     Dates: start: 20200317
  5. INFLECTRA [Concomitant]
     Active Substance: INFLIXIMAB-DYYB
     Dates: start: 20190903
  6. METRONIDAZOLE. [Suspect]
     Active Substance: METRONIDAZOLE
     Dates: start: 2020, end: 202002
  7. IMURAN [Concomitant]
     Active Substance: AZATHIOPRINE
     Dates: start: 201812
  8. PREDNISONE. [Suspect]
     Active Substance: PREDNISONE
     Dates: start: 201904
  9. INFLECTRA [Concomitant]
     Active Substance: INFLIXIMAB-DYYB
     Dates: start: 20191223
  10. INFLECTRA [Concomitant]
     Active Substance: INFLIXIMAB-DYYB
     Indication: COLITIS ULCERATIVE
     Route: 042
     Dates: start: 20190723
  11. IMODIUM [Concomitant]
     Active Substance: LOPERAMIDE HYDROCHLORIDE

REACTIONS (3)
  - Pouchitis [Unknown]
  - Rectal haemorrhage [Unknown]
  - Laboratory test abnormal [Unknown]
